FAERS Safety Report 25804133 (Version 1)
Quarter: 2025Q3

REPORT INFORMATION
  Report Type: Report from Study
  Country: US (occurrence: US)
  Receive Date: 20250915
  Receipt Date: 20250915
  Transmission Date: 20251021
  Serious: Yes (Other)
  Sender: TAKEDA
  Company Number: US-TAKEDA-2022TUS071066

PATIENT
  Sex: Female

DRUGS (4)
  1. TEDUGLUTIDE [Suspect]
     Active Substance: TEDUGLUTIDE
     Indication: Short-bowel syndrome
  2. TEDUGLUTIDE [Suspect]
     Active Substance: TEDUGLUTIDE
     Dosage: UNK UNK, QD
  3. TEDUGLUTIDE [Suspect]
     Active Substance: TEDUGLUTIDE
  4. TEDUGLUTIDE [Suspect]
     Active Substance: TEDUGLUTIDE

REACTIONS (16)
  - Dementia [Unknown]
  - Injection site pain [Unknown]
  - Fatigue [Not Recovered/Not Resolved]
  - Asthenia [Not Recovered/Not Resolved]
  - Dizziness [Not Recovered/Not Resolved]
  - Weight gain poor [Not Recovered/Not Resolved]
  - Gastrointestinal stoma output abnormal [Not Recovered/Not Resolved]
  - Feeling abnormal [Unknown]
  - Hypoaesthesia [Not Recovered/Not Resolved]
  - Stoma site haemorrhage [Unknown]
  - Dyspnoea exertional [Unknown]
  - Nausea [Unknown]
  - Insomnia [Not Recovered/Not Resolved]
  - Gastrointestinal stoma complication [Not Recovered/Not Resolved]
  - Weight increased [Unknown]
  - Injection site mass [Unknown]
